FAERS Safety Report 6502631-1 (Version None)
Quarter: 2009Q4

REPORT INFORMATION
  Report Type: 
  Country: None (occurrence: None)
  Receive Date: 20091127
  Receipt Date: 20090116
  Transmission Date: 20100525
  Serious: Yes (Other)
  Sender: FDA-Public Use
  Company Number: WAES 0901USA02260

PATIENT
  Age: 68 Year
  Sex: Female

DRUGS (3)
  1. FOSAMAX [Suspect]
     Indication: OSTEOPOROSIS
     Dosage: 70 MG/WKY/PO
     Route: 048
     Dates: start: 20050608
  2. ZOMETA [Suspect]
     Indication: BREAST CANCER
  3. LOVASTATIN [Concomitant]

REACTIONS (16)
  - ABSCESS [None]
  - ADVERSE DRUG REACTION [None]
  - ARTHRALGIA [None]
  - CHEST PAIN [None]
  - DEPRESSION [None]
  - DUODENITIS [None]
  - DYSENTERY [None]
  - GASTRITIS [None]
  - GINGIVITIS [None]
  - HIATUS HERNIA [None]
  - HYPERPLASIA [None]
  - MYALGIA [None]
  - ORAL INFECTION [None]
  - OSTEONECROSIS [None]
  - TOOTH ABSCESS [None]
  - WEIGHT DECREASED [None]
